FAERS Safety Report 18886614 (Version 1)
Quarter: 2021Q1

REPORT INFORMATION
  Report Type: Spontaneous
  Country: FR (occurrence: FR)
  Receive Date: 20210212
  Receipt Date: 20210212
  Transmission Date: 20210420
  Serious: Yes (Other)
  Sender: FDA-Public Use
  Company Number: FR-BAYER-2021-060109

PATIENT
  Sex: Female

DRUGS (1)
  1. BILTRICIDE [Suspect]
     Active Substance: PRAZIQUANTEL
     Indication: HELMINTHIC INFECTION
     Dosage: UNK, ONCE
     Dates: start: 20210129, end: 20210129

REACTIONS (1)
  - Helminthic infection [None]
